FAERS Safety Report 25818064 (Version 1)
Quarter: 2025Q3

REPORT INFORMATION
  Report Type: Spontaneous
  Country: GB (occurrence: GB)
  Receive Date: 20250918
  Receipt Date: 20250918
  Transmission Date: 20251020
  Serious: Yes (Other)
  Sender: PFIZER
  Company Number: None

PATIENT
  Sex: Male

DRUGS (1)
  1. VARENICLINE TARTRATE [Suspect]
     Active Substance: VARENICLINE TARTRATE
     Indication: Smoking cessation therapy
     Dosage: 1 MG, 2X/DAY (1MG X 2 PER DAY)
     Dates: start: 20250827, end: 20250830

REACTIONS (3)
  - Self-injurious ideation [Recovered/Resolved]
  - Suicidal ideation [Unknown]
  - Mood altered [Unknown]

NARRATIVE: CASE EVENT DATE: 20250830
